FAERS Safety Report 19072520 (Version 3)
Quarter: 2021Q2

REPORT INFORMATION
  Report Type: Spontaneous
  Country: DK (occurrence: DK)
  Receive Date: 20210330
  Receipt Date: 20210524
  Transmission Date: 20210717
  Serious: Yes (Hospitalization)
  Sender: FDA-Public Use
  Company Number: DK-GLAXOSMITHKLINE-DK2021EME071393

PATIENT
  Sex: Male

DRUGS (1)
  1. FLIXOTIDE DISKUS [Suspect]
     Active Substance: FLUTICASONE PROPIONATE
     Indication: PRODUCT USED FOR UNKNOWN INDICATION
     Dosage: 250 MCG/DOSE, 500MCG, 1X60D EX

REACTIONS (3)
  - Product complaint [Unknown]
  - Asthma [Unknown]
  - Therapeutic product effect incomplete [Unknown]
